FAERS Safety Report 12755075 (Version 1)
Quarter: 2016Q3

REPORT INFORMATION
  Report Type: Spontaneous
  Country: FR (occurrence: FR)
  Receive Date: 20160916
  Receipt Date: 20160916
  Transmission Date: 20161109
  Serious: Yes (Life-Threatening, Hospitalization)
  Sender: FDA-Public Use
  Company Number: FR-PFIZER INC-2016428360

PATIENT
  Age: 61 Year
  Sex: Male

DRUGS (14)
  1. CEFAZOLINE [Suspect]
     Active Substance: CEFAZOLIN SODIUM
     Indication: STAPHYLOCOCCAL INFECTION
     Dosage: UNK
     Route: 048
     Dates: start: 20160730, end: 20160731
  2. TAVANIC [Concomitant]
     Active Substance: LEVOFLOXACIN
     Indication: INTERVERTEBRAL DISCITIS
     Route: 042
  3. BACTRIM [Suspect]
     Active Substance: SULFAMETHOXAZOLE\TRIMETHOPRIM
     Indication: INTERVERTEBRAL DISCITIS
     Dosage: 1 DF, 3X/DAY
     Route: 048
     Dates: start: 20160706, end: 20160726
  4. BACTRIM [Suspect]
     Active Substance: SULFAMETHOXAZOLE\TRIMETHOPRIM
     Indication: STAPHYLOCOCCAL INFECTION
  5. GENTAMICIN. [Concomitant]
     Active Substance: GENTAMICIN
     Indication: STAPHYLOCOCCAL INFECTION
  6. CEFAZOLINE [Suspect]
     Active Substance: CEFAZOLIN SODIUM
     Indication: INFECTION
  7. DALACINE [Suspect]
     Active Substance: CLINDAMYCIN HYDROCHLORIDE
     Indication: INTERVERTEBRAL DISCITIS
     Dosage: 600 MG, 3X/DAY
     Route: 048
     Dates: start: 20160706, end: 20160726
  8. SKENAN [Suspect]
     Active Substance: MORPHINE SULFATE
     Indication: PAIN
     Dosage: 10 MG, 2X/DAY
     Route: 048
     Dates: start: 20160707, end: 20160726
  9. GENTAMICIN. [Concomitant]
     Active Substance: GENTAMICIN
     Indication: INTERVERTEBRAL DISCITIS
     Route: 042
  10. DALACINE [Suspect]
     Active Substance: CLINDAMYCIN HYDROCHLORIDE
     Indication: STAPHYLOCOCCAL INFECTION
     Dosage: 600 MG, 3X/DAY
     Route: 048
     Dates: start: 20160729, end: 20160730
  11. CEFAZOLINE [Suspect]
     Active Substance: CEFAZOLIN SODIUM
     Indication: INTERVERTEBRAL DISCITIS
     Dosage: UNK
     Route: 042
  12. LOVENOX [Suspect]
     Active Substance: ENOXAPARIN SODIUM
     Indication: DEEP VEIN THROMBOSIS
     Dosage: 7000 IU, 2X/DAY
     Route: 058
     Dates: start: 20160728, end: 20160730
  13. DOLIPRANE [Suspect]
     Active Substance: ACETAMINOPHEN
     Indication: PYREXIA
     Dosage: UNK
     Route: 048
     Dates: start: 20160729, end: 20160730
  14. TAVANIC [Concomitant]
     Active Substance: LEVOFLOXACIN
     Indication: STAPHYLOCOCCAL INFECTION

REACTIONS (2)
  - Drug reaction with eosinophilia and systemic symptoms [Recovering/Resolving]
  - Liver injury [Recovering/Resolving]

NARRATIVE: CASE EVENT DATE: 20160726
